FAERS Safety Report 18506753 (Version 2)
Quarter: 2022Q3

REPORT INFORMATION
  Report Type: Spontaneous
  Country: JP (occurrence: JP)
  Receive Date: 20201116
  Receipt Date: 20220725
  Transmission Date: 20221027
  Serious: Yes (Other)
  Sender: FDA-Public Use
  Company Number: JP-FERRING-EVA202001054FERRINGPH

PATIENT

DRUGS (2)
  1. DINOPROSTONE [Suspect]
     Active Substance: DINOPROSTONE
     Indication: Induction of cervix ripening
     Dosage: 10 MG, ONCE/SINGLE
     Route: 067
  2. OXYTOCIN [Concomitant]
     Active Substance: OXYTOCIN
     Route: 065

REACTIONS (2)
  - Uterine contractions abnormal [Recovered/Resolved]
  - Blood pressure increased [Recovered/Resolved]
